FAERS Safety Report 5361335-1 (Version None)
Quarter: 2007Q2

REPORT INFORMATION
  Report Type: 
  Country: None (occurrence: None)
  Receive Date: 20070612
  Receipt Date: 20070601
  Transmission Date: 20071010
  Serious: Yes (Hospitalization)
  Sender: FDA-Public Use
  Company Number: 2007BI012089

PATIENT
  Age: 40 Year
  Sex: Male
  Weight: 69 kg

DRUGS (1)
  1. AVONEX [Suspect]
     Indication: MULTIPLE SCLEROSIS
     Dosage: 30 UG; QW; IM
     Route: 030
     Dates: start: 20050901

REACTIONS (7)
  - CHILLS [None]
  - CONDITION AGGRAVATED [None]
  - DIPLOPIA [None]
  - INFLUENZA LIKE ILLNESS [None]
  - NIGHT SWEATS [None]
  - PYREXIA [None]
  - SENSATION OF HEAVINESS [None]
